FAERS Safety Report 7302887-1 (Version None)
Quarter: 2011Q1

REPORT INFORMATION
  Report Type: 
  Country: None (occurrence: None)
  Receive Date: 20110218
  Receipt Date: 20110204
  Transmission Date: 20110831
  Serious: Yes (Hospitalization, Disabling)
  Sender: FDA-Public Use
  Company Number: BE-GENENTECH-313575

PATIENT
  Sex: Male
  Weight: 78 kg

DRUGS (15)
  1. MABTHERA [Suspect]
     Dosage: 1000 MG/M2, UNK
     Route: 042
     Dates: start: 20100209
  2. MABTHERA [Suspect]
     Dosage: 500 MG/M2, UNK
     Route: 042
     Dates: start: 20091124
  3. FLUDARABINE [Suspect]
     Indication: CHRONIC LYMPHOCYTIC LEUKAEMIA
     Dosage: 25 MG/M2, UNK
     Route: 065
     Dates: start: 20090929
  4. FLUDARABINE [Suspect]
     Dosage: 12.5 MG/M2, UNK
     Route: 065
     Dates: start: 20100208, end: 20100309
  5. CYCLOPHOSPHAMIDE [Suspect]
     Dosage: 250 MG/M2, UNK
     Route: 065
     Dates: start: 20100104
  6. MABTHERA [Suspect]
     Dosage: 1 G, UNK
     Route: 042
     Dates: start: 20100622
  7. FLUDARABINE [Suspect]
     Dosage: 25 MG/M2, UNK
     Route: 065
     Dates: start: 20091123
  8. CYCLOPHOSPHAMIDE [Suspect]
     Indication: CHRONIC LYMPHOCYTIC LEUKAEMIA
     Dosage: 250 MG/M2, UNK
     Route: 065
     Dates: start: 20090929
  9. MABTHERA [Suspect]
     Dosage: 1000 MG/M2, UNK
     Route: 042
     Dates: start: 20100105
  10. CYCLOPHOSPHAMIDE [Suspect]
     Dosage: 125 MG/M2, UNK
     Route: 065
     Dates: start: 20100208, end: 20100309
  11. MABTHERA [Suspect]
     Indication: CHRONIC LYMPHOCYTIC LEUKAEMIA
     Dosage: 375 MG/M2, UNK
     Route: 042
     Dates: start: 20091028
  12. CYCLOPHOSPHAMIDE [Suspect]
     Dosage: 250 MG/M2, UNK
     Route: 065
     Dates: start: 20001123
  13. CYCLOPHOSPHAMIDE [Suspect]
     Dosage: 250 MG/M2, UNK
     Route: 065
     Dates: start: 20091027
  14. FLUDARABINE [Suspect]
     Dosage: 25 MG/M2, UNK
     Route: 065
     Dates: start: 20091027
  15. FLUDARABINE [Suspect]
     Dosage: 25 MG/M2, UNK
     Route: 065
     Dates: start: 20100104

REACTIONS (5)
  - PROGRESSIVE MULTIFOCAL LEUKOENCEPHALOPATHY [None]
  - PANCYTOPENIA [None]
  - TRANSIENT ISCHAEMIC ATTACK [None]
  - SPEECH DISORDER [None]
  - RESPIRATORY FAILURE [None]
